FAERS Safety Report 5533127-1 (Version None)
Quarter: 2007Q4

REPORT INFORMATION
  Report Type: 
  Country: None (occurrence: None)
  Receive Date: 20071130
  Receipt Date: 20071130
  Transmission Date: 20080405
  Serious: Yes (Hospitalization)
  Sender: FDA-Public Use
  Company Number: None

PATIENT
  Age: 63 Year
  Sex: Male
  Weight: 101.6057 kg

DRUGS (1)
  1. DOFETILIDE 500 MCG [Suspect]
     Indication: ATRIAL FIBRILLATION
     Dosage: 500 MCG  BID
     Dates: start: 20071109, end: 20071118

REACTIONS (2)
  - CONFUSIONAL STATE [None]
  - MENTAL STATUS CHANGES [None]
